FAERS Safety Report 14008071 (Version 2)
Quarter: 2017Q4

REPORT INFORMATION
  Report Type: Spontaneous
  Country: US (occurrence: US)
  Receive Date: 20170925
  Receipt Date: 20171006
  Transmission Date: 20180321
  Serious: No
  Sender: FDA-Public Use
  Company Number: US-PFIZER INC-2017410328

PATIENT
  Age: 54 Year
  Sex: Female

DRUGS (5)
  1. TOPOTECAN HYDROCHLORIDE. [Suspect]
     Active Substance: TOPOTECAN HYDROCHLORIDE
     Indication: CERVIX CARCINOMA
     Dosage: 4 CYCLES (BEVACIZUMAB/TOPOTECAN)
     Dates: start: 201501, end: 201503
  2. TOPOTECAN HYDROCHLORIDE. [Suspect]
     Active Substance: TOPOTECAN HYDROCHLORIDE
     Dosage: 18 CYCLES (BEVACIZUMAB/TOPOTECAN)
     Dates: start: 201604, end: 201707
  3. BEVACIZUMAB. [Suspect]
     Active Substance: BEVACIZUMAB
     Dosage: 18 CYCLES (BEVACIZUMAB/TOPOTECAN)
     Dates: start: 201604, end: 201707
  4. BEVACIZUMAB. [Suspect]
     Active Substance: BEVACIZUMAB
     Dosage: 15 MG/M2, CYCLIC
     Dates: start: 201708
  5. BEVACIZUMAB. [Suspect]
     Active Substance: BEVACIZUMAB
     Indication: CERVIX CARCINOMA
     Dosage: 4 CYCLES (BEVACIZUMAB/TOPOTECAN )
     Dates: start: 201501, end: 201503

REACTIONS (2)
  - Proteinuria [Unknown]
  - Tumour marker increased [Unknown]
